FAERS Safety Report 11427426 (Version 1)
Quarter: 2015Q3

REPORT INFORMATION
  Report Type: Spontaneous
  Country: US (occurrence: US)
  Receive Date: 20150827
  Receipt Date: 20150827
  Transmission Date: 20151125
  Serious: No
  Sender: FDA-Public Use
  Company Number: US-SA-2014SA177740

PATIENT
  Age: 54 Year
  Sex: Female
  Weight: 83.5 kg

DRUGS (10)
  1. WATER. [Concomitant]
     Active Substance: WATER
  2. VITAMIN D [Concomitant]
     Active Substance: CHOLECALCIFEROL
  3. NORMAL SALINE [Concomitant]
     Active Substance: SODIUM CHLORIDE
  4. FABRAZYME [Suspect]
     Active Substance: AGALSIDASE BETA
     Indication: FABRY^S DISEASE
     Route: 041
     Dates: start: 20090305
  5. DIPHENHYDRAMINE. [Concomitant]
     Active Substance: DIPHENHYDRAMINE
  6. SYNTHROID [Concomitant]
     Active Substance: LEVOTHYROXINE SODIUM
  7. FABRAZYME [Suspect]
     Active Substance: AGALSIDASE BETA
     Indication: FABRY^S DISEASE
     Route: 041
     Dates: start: 20090305
  8. EPINEPHRINE. [Concomitant]
     Active Substance: EPINEPHRINE
  9. LIDOCAINE. [Concomitant]
     Active Substance: LIDOCAINE
  10. LASIX [Concomitant]
     Active Substance: FUROSEMIDE

REACTIONS (2)
  - Swelling face [Not Recovered/Not Resolved]
  - Abdominal distension [Not Recovered/Not Resolved]
